FAERS Safety Report 9239997 (Version 1)
Quarter: 2013Q2

REPORT INFORMATION
  Report Type: Spontaneous
  Country: FR (occurrence: FR)
  Receive Date: 20130418
  Receipt Date: 20130418
  Transmission Date: 20140414
  Serious: Yes (Life-Threatening, Hospitalization)
  Sender: FDA-Public Use
  Company Number: FR-VIIV HEALTHCARE LIMITED-B0882266A

PATIENT
  Age: 51 Year
  Sex: Female
  Weight: 89 kg

DRUGS (10)
  1. KIVEXA [Suspect]
     Indication: HIV INFECTION
     Dosage: 1TAB PER DAY
     Route: 048
     Dates: start: 20130207, end: 20130317
  2. ISENTRESS [Suspect]
     Indication: HIV INFECTION
     Dosage: 800MG TWICE PER DAY
     Route: 048
     Dates: start: 20130207, end: 20130317
  3. RIFADINE [Suspect]
     Indication: ANTIBIOTIC PROPHYLAXIS
     Dosage: 600MG PER DAY
     Route: 048
     Dates: start: 20130110, end: 20130318
  4. DEXAMBUTOL [Suspect]
     Indication: ANTIBIOTIC PROPHYLAXIS
     Dosage: 1500MG PER DAY
     Route: 048
     Dates: start: 20130110, end: 20130318
  5. RIMIFON [Suspect]
     Indication: ANTIBIOTIC PROPHYLAXIS
     Dosage: 300MG PER DAY
     Route: 048
     Dates: start: 20130110, end: 20130318
  6. MALOCIDE [Concomitant]
     Indication: TOXOPLASMOSIS PROPHYLAXIS
     Route: 065
     Dates: start: 20130110, end: 20130117
  7. DALACINE [Concomitant]
     Route: 065
     Dates: start: 20130110, end: 20130130
  8. ROCEPHINE [Concomitant]
     Indication: URINARY TRACT INFECTION
     Dosage: 1G PER DAY
     Route: 065
     Dates: start: 20130308, end: 20130311
  9. TIENAM [Concomitant]
     Indication: ESCHERICHIA URINARY TRACT INFECTION
     Route: 065
     Dates: start: 20130311, end: 20130317
  10. INEXIUM [Concomitant]
     Indication: PRODUCT USED FOR UNKNOWN INDICATION
     Dates: end: 20130322

REACTIONS (13)
  - Drug reaction with eosinophilia and systemic symptoms [Not Recovered/Not Resolved]
  - Rash maculo-papular [Not Recovered/Not Resolved]
  - Lymphadenopathy [Not Recovered/Not Resolved]
  - Pyrexia [Not Recovered/Not Resolved]
  - Hepatocellular injury [Not Recovered/Not Resolved]
  - Face oedema [Not Recovered/Not Resolved]
  - Eosinophilia [Not Recovered/Not Resolved]
  - Agranulocytosis [Recovering/Resolving]
  - Pruritus [Unknown]
  - Rash pustular [Unknown]
  - Acute generalised exanthematous pustulosis [Not Recovered/Not Resolved]
  - Glossitis [Unknown]
  - Enanthema [Unknown]
